APPROVED DRUG PRODUCT: DOCETAXEL
Active Ingredient: DOCETAXEL
Strength: 160MG/16ML (10MG/ML)
Dosage Form/Route: INJECTABLE;INJECTION
Application: N201525 | Product #003 | TE Code: AP
Applicant: SANDOZ
Approved: Jun 29, 2011 | RLD: No | RS: No | Type: RX